FAERS Safety Report 6783985-8 (Version None)
Quarter: 2010Q2

REPORT INFORMATION
  Report Type: 
  Country: None (occurrence: None)
  Receive Date: 20100622
  Receipt Date: 20100611
  Transmission Date: 20101027
  Serious: Yes (Hospitalization)
  Sender: FDA-Public Use
  Company Number: US-JNJCH-2010013530

PATIENT
  Age: 5 Year
  Sex: Male

DRUGS (3)
  1. CHILDREN'S BENADRYL ALLERGY [Suspect]
     Indication: HYPERSENSITIVITY
     Dosage: TEXT:AS DIRECTED ONE TIME
     Route: 048
     Dates: start: 20100313, end: 20100313
  2. CHILDREN'S TYLENOL SUSPENSION [Suspect]
     Indication: PYREXIA
     Dosage: TEXT:1 TEASPOONFUL
     Route: 048
  3. CHILDREN'S MOTRIN [Suspect]
     Indication: DRUG USE FOR UNKNOWN INDICATION
     Dosage: TEXT:UNKNOWN
     Route: 048

REACTIONS (5)
  - DYSPNOEA [None]
  - PRODUCT QUALITY ISSUE [None]
  - PYREXIA [None]
  - RESPIRATORY TRACT INFECTION [None]
  - TRANSMISSION OF AN INFECTIOUS AGENT VIA A MEDICINAL PRODUCT [None]
